FAERS Safety Report 15474180 (Version 3)
Quarter: 2018Q4

REPORT INFORMATION
  Report Type: Spontaneous
  Country: US (occurrence: US)
  Receive Date: 20181008
  Receipt Date: 20181212
  Transmission Date: 20190205
  Serious: Yes (Other)
  Sender: FDA-Public Use
  Company Number: US-SA-2018SA276039

PATIENT
  Age: 68 Year
  Sex: Female
  Weight: 90 kg

DRUGS (16)
  1. TAXOTERE [Suspect]
     Active Substance: DOCETAXEL
     Dosage: 38.4 MG, 48MG
     Route: 042
     Dates: start: 20100112, end: 20100112
  2. LOMOTIL [LOPERAMIDE HYDROCHLORIDE] [Concomitant]
  3. IMODIUM [Concomitant]
     Active Substance: LOPERAMIDE HYDROCHLORIDE
  4. ADRIAMYCIN [Concomitant]
     Active Substance: DOXORUBICIN HYDROCHLORIDE
  5. TOPROL XL [Concomitant]
     Active Substance: METOPROLOL SUCCINATE
  6. DECADRON [DEXAMETHASONE] [Concomitant]
  7. ANZEMET [Concomitant]
     Active Substance: DOLASETRON MESYLATE
  8. ATIVAN [Concomitant]
     Active Substance: LORAZEPAM
  9. NEOSAR [Concomitant]
     Active Substance: CYCLOPHOSPHAMIDE
  10. TAXOL [Concomitant]
     Active Substance: PACLITAXEL
  11. TAXOTERE [Suspect]
     Active Substance: DOCETAXEL
     Indication: BREAST CANCER FEMALE
     Dosage: 38.4 MG, 48MG
     Route: 042
     Dates: start: 20090804, end: 20090804
  12. CARBOPLATIN. [Concomitant]
     Active Substance: CARBOPLATIN
  13. COMPAZINE [Concomitant]
     Active Substance: PROCHLORPERAZINE MALEATE
  14. PARAPLATIN [Concomitant]
     Active Substance: CARBOPLATIN
  15. HEPARIN [Concomitant]
     Active Substance: HEPARIN SODIUM
  16. ZOFRAN [ONDANSETRON] [Concomitant]

REACTIONS (1)
  - Alopecia [Not Recovered/Not Resolved]

NARRATIVE: CASE EVENT DATE: 20100712
